FAERS Safety Report 4387615-4 (Version None)
Quarter: 2004Q2

REPORT INFORMATION
  Report Type: 
  Country: None (occurrence: None)
  Receive Date: 20040630
  Receipt Date: 20040519
  Transmission Date: 20050107
  Serious: No
  Sender: FDA-Public Use
  Company Number: US-GLAXOSMITHKLINE-A0511465A

PATIENT
  Age: 12 Year
  Sex: Female
  Weight: 53.2 kg

DRUGS (4)
  1. ADVAIR DISKUS 100/50 [Suspect]
     Indication: ASTHMA
     Route: 055
     Dates: start: 20020325, end: 20020415
  2. SINGULAIR [Concomitant]
     Route: 048
     Dates: start: 20011101
  3. PULMICORT [Concomitant]
     Route: 055
     Dates: start: 20011101
  4. PREDNISONE [Concomitant]
     Route: 048

REACTIONS (2)
  - CHEST PAIN [None]
  - HERPES ZOSTER [None]
